FAERS Safety Report 6594752-2 (Version None)
Quarter: 2010Q1

REPORT INFORMATION
  Report Type: 
  Country: None (occurrence: None)
  Receive Date: 20100222
  Receipt Date: 20100211
  Transmission Date: 20100710
  Serious: Yes (Hospitalization)
  Sender: FDA-Public Use
  Company Number: IN-PFIZER INC-2008044534

PATIENT
  Age: 44 Year
  Sex: Male
  Weight: 56 kg

DRUGS (1)
  1. PREGABALIN [Suspect]
     Indication: PARTIAL SEIZURES
     Dosage: 150MG PER DAY
     Route: 048
     Dates: start: 20071214, end: 20080516

REACTIONS (2)
  - PARTIAL SEIZURES [None]
  - STATUS EPILEPTICUS [None]
